FAERS Safety Report 20632242 (Version 1)
Quarter: 2022Q1

REPORT INFORMATION
  Report Type: Spontaneous
  Country: DE (occurrence: DE)
  Receive Date: 20220324
  Receipt Date: 20220324
  Transmission Date: 20220423
  Serious: Yes (Other)
  Sender: FDA-Public Use
  Company Number: DE-Merck Healthcare KGaA-9307559

PATIENT
  Sex: Male

DRUGS (2)
  1. EUTHYROX [Suspect]
     Active Substance: LEVOTHYROXINE SODIUM
     Indication: Product used for unknown indication
     Dosage: UNKNOWN
  2. LEVOTHYROXINE SODIUM\LIOTHYRONINE SODIUM [Suspect]
     Active Substance: LEVOTHYROXINE SODIUM\LIOTHYRONINE SODIUM
     Indication: Product used for unknown indication
     Dosage: UNKNOWN

REACTIONS (2)
  - Suicidal ideation [Unknown]
  - General physical health deterioration [Unknown]
